FAERS Safety Report 14157456 (Version 1)
Quarter: 2017Q4

REPORT INFORMATION
  Report Type: Report from Study
  Country: AU (occurrence: AU)
  Receive Date: 20171103
  Receipt Date: 20171103
  Transmission Date: 20180321
  Serious: Yes (Other)
  Sender: FDA-Public Use
  Company Number: AU-REGENERON PHARMACEUTICALS, INC.-2017-25467

PATIENT

DRUGS (2)
  1. EYLEA [Suspect]
     Active Substance: AFLIBERCEPT
     Dosage: (OS)
     Dates: start: 2017
  2. EYLEA [Suspect]
     Active Substance: AFLIBERCEPT
     Indication: NEOVASCULAR AGE-RELATED MACULAR DEGENERATION
     Dosage: (OD). TOTAL DOSES AND LAST DOSE PRIOR THE EVENT WERE NOT PROVIDED.
     Route: 031
     Dates: start: 20150724

REACTIONS (2)
  - Asthenia [Unknown]
  - Neovascular age-related macular degeneration [Recovering/Resolving]
